FAERS Safety Report 24991457 (Version 1)
Quarter: 2025Q1

REPORT INFORMATION
  Report Type: Spontaneous
  Country: BR (occurrence: BR)
  Receive Date: 20250220
  Receipt Date: 20250220
  Transmission Date: 20250408
  Serious: Yes (Hospitalization, Disabling, Other)
  Sender: MYLAN
  Company Number: BR-MYLANLABS-2025M1012549

PATIENT
  Age: 54 Year
  Sex: Male
  Weight: 83 kg

DRUGS (5)
  1. XALATAN [Suspect]
     Active Substance: LATANOPROST
     Indication: Glaucoma
     Dosage: 1 GTT DROPS, PM (AT ONE DROP IN EACH EYE, ONCE A DAY AT NIGHT)
     Route: 047
     Dates: start: 2020
  2. PURAN [Suspect]
     Active Substance: LEVOTHYROXINE SODIUM
     Indication: Hypothyroidism
     Route: 065
  3. TIMOLOL MALEATE [Suspect]
     Active Substance: TIMOLOL MALEATE
     Indication: Glaucoma
     Dosage: 1 GTT DROPS, AM (1 DROP IN EACH EYE)
     Route: 047
  4. VALERIAN [Suspect]
     Active Substance: VALERIAN
     Indication: Affect lability
     Dosage: 50 MILLIGRAM, BID
     Route: 065
     Dates: start: 2015
  5. BISOPROLOL FUMARATE [Suspect]
     Active Substance: BISOPROLOL FUMARATE
     Indication: Left ventricular failure
     Dosage: 2.5 MILLIGRAM, QD
     Route: 065
     Dates: start: 202007

REACTIONS (14)
  - Knee operation [Not Recovered/Not Resolved]
  - Road traffic accident [Recovering/Resolving]
  - Myocardial infarction [Recovered/Resolved]
  - Diabetes mellitus [Not Recovered/Not Resolved]
  - Jaw fracture [Unknown]
  - Clavicle fracture [Unknown]
  - Rib fracture [Unknown]
  - Left ventricular failure [Not Recovered/Not Resolved]
  - Blood disorder [Not Recovered/Not Resolved]
  - Cardiovascular disorder [Not Recovered/Not Resolved]
  - Glucose tolerance impaired [Not Recovered/Not Resolved]
  - Insomnia [Recovered/Resolved]
  - Arteriosclerosis [Not Recovered/Not Resolved]
  - Cardiac murmur [Not Recovered/Not Resolved]

NARRATIVE: CASE EVENT DATE: 20200701
